FAERS Safety Report 8237266-6 (Version None)
Quarter: 2012Q1

REPORT INFORMATION
  Report Type: 
  Country: None (occurrence: None)
  Receive Date: 20120327
  Receipt Date: 20120327
  Transmission Date: 20120608
  Serious: Yes (Hospitalization)
  Sender: FDA-Public Use
  Company Number: None

PATIENT
  Age: 68 Year
  Sex: Female
  Weight: 76.2 kg

DRUGS (2)
  1. LEVOFLOXACIN [Suspect]
     Indication: INFECTION
     Dosage: 750MG
     Route: 041
     Dates: start: 20120218, end: 20120219
  2. LEVAQUIN [Concomitant]
     Dosage: 500 MG
     Route: 048
     Dates: start: 20120220, end: 20120227

REACTIONS (1)
  - TENDON DISORDER [None]
